FAERS Safety Report 5826861-7 (Version None)
Quarter: 2008Q3

REPORT INFORMATION
  Report Type: 
  Country: None (occurrence: None)
  Receive Date: 20080729
  Receipt Date: 20080729
  Transmission Date: 20090109
  Serious: Yes (Hospitalization)
  Sender: FDA-Public Use
  Company Number: None

PATIENT
  Sex: Female
  Weight: 56 kg

DRUGS (8)
  1. BEVACIZUMAB (GENENTECH) [Suspect]
     Indication: BRAIN NEOPLASM
     Dosage: 10 MG/KG
  2. TARCEVA [Suspect]
     Dosage: 150MG PO QD
     Route: 048
  3. KEPPRA [Concomitant]
  4. MINOCYCLINE HCL [Concomitant]
  5. FLAGYL [Concomitant]
  6. PROTONIX [Concomitant]
  7. LOTREL [Concomitant]
  8. POTASSIUM CHLORIDE [Concomitant]

REACTIONS (2)
  - CELLULITIS [None]
  - FUNGAL SKIN INFECTION [None]
